FAERS Safety Report 5828767-6 (Version None)
Quarter: 2008Q3

REPORT INFORMATION
  Report Type: 
  Country: None (occurrence: None)
  Receive Date: 20080731
  Receipt Date: 20080721
  Transmission Date: 20090109
  Serious: Yes (Hospitalization)
  Sender: FDA-Public Use
  Company Number: US-MERCK-0807USA02914

PATIENT
  Sex: Female

DRUGS (1)
  1. HEARTGARD 30 [Suspect]
     Indication: DRUG ADMINISTRATION ERROR
     Route: 061
     Dates: start: 20080714, end: 20080714

REACTIONS (3)
  - ACCIDENTAL EXPOSURE [None]
  - PHARYNGEAL OEDEMA [None]
  - THROAT IRRITATION [None]
